FAERS Safety Report 13922814 (Version 1)
Quarter: 2017Q3

REPORT INFORMATION
  Report Type: Report from Study
  Country: US (occurrence: US)
  Receive Date: 20170830
  Receipt Date: 20170830
  Transmission Date: 20171127
  Serious: Yes (Other)
  Sender: FDA-Public Use
  Company Number: PHEH2017US027346

PATIENT
  Age: 52 Year
  Sex: Female

DRUGS (2)
  1. POTASSIUM [Concomitant]
     Active Substance: POTASSIUM
     Indication: PRODUCT USED FOR UNKNOWN INDICATION
     Route: 065
  2. ENTRESTO [Suspect]
     Active Substance: SACUBITRIL\VALSARTAN
     Indication: PRODUCT USED FOR UNKNOWN INDICATION
     Dosage: 1 DF (97 MG OF SACUBITRIL/ 103 MG OF VALSARTAN), BID (ONE TAB IN THE MORNING AND ONE IN THE EVENING)
     Route: 065
     Dates: start: 201703

REACTIONS (5)
  - Blood glucose decreased [Unknown]
  - Loss of consciousness [Unknown]
  - Overweight [Unknown]
  - Accident [Unknown]
  - Heart rate increased [Unknown]

NARRATIVE: CASE EVENT DATE: 20170604
